FAERS Safety Report 6494348-7 (Version None)
Quarter: 2009Q4

REPORT INFORMATION
  Report Type: 
  Country: None (occurrence: None)
  Receive Date: 20091214
  Receipt Date: 20090210
  Transmission Date: 20100525
  Serious: No
  Sender: FDA-Public Use
  Company Number: US-BRISTOL-MYERS SQUIBB COMPANY-14500946

PATIENT
  Age: 40 Year
  Sex: Male

DRUGS (2)
  1. ABILIFY [Suspect]
     Indication: DEPRESSION
  2. SSRI [Concomitant]

REACTIONS (3)
  - EJACULATION FAILURE [None]
  - LIBIDO DECREASED [None]
  - SEXUAL DYSFUNCTION [None]
